FAERS Safety Report 13136048 (Version 1)
Quarter: 2017Q1

REPORT INFORMATION
  Report Type: Spontaneous
  Country: GB (occurrence: GB)
  Receive Date: 20170120
  Receipt Date: 20170120
  Transmission Date: 20170428
  Serious: Yes (Other)
  Sender: FDA-Public Use
  Company Number: PHHY2017GB003668

PATIENT
  Sex: Female

DRUGS (1)
  1. CLARITHROMYCIN SANDOZ [Suspect]
     Active Substance: CLARITHROMYCIN
     Indication: RESPIRATORY TRACT INFECTION
     Dosage: 10 ML, BID
     Route: 048

REACTIONS (13)
  - Product odour abnormal [Unknown]
  - Product physical consistency issue [Unknown]
  - Nightmare [Unknown]
  - Product taste abnormal [Unknown]
  - Disorientation [Unknown]
  - Syncope [Unknown]
  - Menstrual disorder [Unknown]
  - Retching [Unknown]
  - Vomiting [Unknown]
  - Drug ineffective [Unknown]
  - Wrong technique in product usage process [Unknown]
  - Headache [Unknown]
  - Sleep disorder [Unknown]
